FAERS Safety Report 15769870 (Version 1)
Quarter: 2018Q4

REPORT INFORMATION
  Report Type: Spontaneous
  Country: US (occurrence: US)
  Receive Date: 20181228
  Receipt Date: 20181228
  Transmission Date: 20190205
  Serious: Yes (Other)
  Sender: FDA-Public Use
  Company Number: US-CIPLA LTD.-2018US18305

PATIENT

DRUGS (2)
  1. LAMOTRIGINE. [Suspect]
     Active Substance: LAMOTRIGINE
     Indication: AFFECTIVE DISORDER
     Dosage: 150 MG, BID, TEVA MANUFACTURED
     Route: 048
     Dates: start: 20160912
  2. LAMOTRIGINE. [Suspect]
     Active Substance: LAMOTRIGINE
     Dosage: 150 MG, BID, CIPLA MANUFACTURED
     Route: 048
     Dates: start: 2018

REACTIONS (9)
  - Suicidal ideation [Unknown]
  - Product substitution issue [Unknown]
  - Irritability [Unknown]
  - Apathy [Unknown]
  - Anhedonia [Unknown]
  - Depressive symptom [Unknown]
  - Agitation [Unknown]
  - Anger [Unknown]
  - Anxiety [Unknown]

NARRATIVE: CASE EVENT DATE: 2018
